FAERS Safety Report 20004633 (Version 1)
Quarter: 2021Q4

REPORT INFORMATION
  Report Type: Spontaneous
  Country: US (occurrence: US)
  Receive Date: 20211027
  Receipt Date: 20211027
  Transmission Date: 20220303
  Serious: Yes (unspecified)
  Sender: FDA-Public Use
  Company Number: None

PATIENT
  Age: 23 Year
  Sex: Female
  Weight: 99.9 kg

DRUGS (2)
  1. REGEN-COV [Suspect]
     Active Substance: CASIRIVIMAB\IMDEVIMAB
     Indication: COVID-19
     Dosage: ?          OTHER FREQUENCY:ONCE;
     Route: 041
  2. REGEN-COV [Suspect]
     Active Substance: CASIRIVIMAB\IMDEVIMAB
     Indication: COVID-19

REACTIONS (9)
  - Infusion related reaction [None]
  - Muscle spasms [None]
  - Chest pain [None]
  - Nausea [None]
  - Erythema [None]
  - Hyperhidrosis [None]
  - Heart rate increased [None]
  - Exposure during pregnancy [None]
  - Blood pressure increased [None]

NARRATIVE: CASE EVENT DATE: 20211025
